FAERS Safety Report 4512872-0 (Version None)
Quarter: 2004Q4

REPORT INFORMATION
  Report Type: 
  Country: None (occurrence: None)
  Receive Date: 20041119
  Receipt Date: 20041119
  Transmission Date: 20050328
  Serious: Yes (Life-Threatening)
  Sender: FDA-Public Use
  Company Number: None

PATIENT
  Age: 13 Year
  Sex: Female
  Weight: 38.2 kg

DRUGS (9)
  1. METHOTREXATE [Suspect]
     Indication: BONE SARCOMA
     Dosage: 16 GM ONCE IV
     Route: 042
     Dates: start: 20041102
  2. METHOTREXATE [Suspect]
  3. METHOTREXATE [Suspect]
  4. METHOTREXATE [Suspect]
  5. KYTRIL [Concomitant]
  6. DEXAMETHASONE [Concomitant]
  7. BENADRYL [Concomitant]
  8. PHENERGAN D5W + 40MEQ NAHCO3/L [Concomitant]
  9. LEUCOVORIN [Concomitant]

REACTIONS (12)
  - ANAEMIA [None]
  - HAEMODIALYSIS [None]
  - HYPOCALCAEMIA [None]
  - HYPOCHLORAEMIA [None]
  - HYPONATRAEMIA [None]
  - ISCHAEMIA [None]
  - LEUKOPENIA [None]
  - LIVER FUNCTION TEST ABNORMAL [None]
  - NEUROLOGICAL SYMPTOM [None]
  - RENAL FAILURE [None]
  - THERAPEUTIC AGENT TOXICITY [None]
  - THROMBOCYTOPENIA [None]
